FAERS Safety Report 22152547 (Version 1)
Quarter: 2023Q1

REPORT INFORMATION
  Report Type: Report from Study
  Country: US (occurrence: US)
  Receive Date: 20230329
  Receipt Date: 20230329
  Transmission Date: 20230417
  Serious: Yes (Other)
  Sender: FDA-Public Use
  Company Number: US-MYLANLABS-2023M1031087

PATIENT
  Age: 73 Year
  Sex: Female
  Weight: 68.94 kg

DRUGS (3)
  1. YUPELRI [Suspect]
     Active Substance: REVEFENACIN
     Indication: Chronic obstructive pulmonary disease
     Dosage: 175 MICROGRAM, QD
     Route: 055
     Dates: start: 20230224, end: 20230228
  2. BUDESONIDE [Suspect]
     Active Substance: BUDESONIDE
     Indication: Chronic obstructive pulmonary disease
     Dosage: 1 DOSAGE FORM, BID
     Route: 065
     Dates: start: 20230224, end: 20230228
  3. FORMOTEROL [Suspect]
     Active Substance: FORMOTEROL
     Indication: Chronic obstructive pulmonary disease
     Dosage: 1 DOSAGE FORM, BID
     Route: 065
     Dates: start: 20230224, end: 20230228

REACTIONS (2)
  - Swelling [Recovered/Resolved]
  - Chest pain [Recovered/Resolved]

NARRATIVE: CASE EVENT DATE: 20230224
